FAERS Safety Report 8470958-2 (Version None)
Quarter: 2012Q2

REPORT INFORMATION
  Report Type: 
  Country: None (occurrence: None)
  Receive Date: 20120627
  Receipt Date: 20120625
  Transmission Date: 20120825
  Serious: Yes (Hospitalization, Other)
  Sender: FDA-Public Use
  Company Number: FR-SHIRE-SPV1-2012-00585

PATIENT
  Age: 38 Year
  Sex: Female

DRUGS (1)
  1. ANAGRELIDE HYDROCHLORIDE [Suspect]
     Indication: ESSENTIAL THROMBOCYTHAEMIA
     Dosage: UNK

REACTIONS (5)
  - CAUDA EQUINA SYNDROME [None]
  - HYSTERECTOMY [None]
  - RENAL FAILURE [None]
  - PARALYSIS FLACCID [None]
  - RHABDOMYOLYSIS [None]
